FAERS Safety Report 4421455-2 (Version None)
Quarter: 2004Q3

REPORT INFORMATION
  Report Type: 
  Country: None (occurrence: None)
  Receive Date: 20040712
  Receipt Date: 20040426
  Transmission Date: 20050211
  Serious: No
  Sender: FDA-Public Use
  Company Number: 2004-02-0768

PATIENT
  Age: 11 Year
  Sex: Female
  Weight: 29.0302 kg

DRUGS (1)
  1. CLARINEX [Suspect]
     Dosage: 5 MG QD ORAL
     Route: 048
     Dates: start: 20030801, end: 20040206

REACTIONS (5)
  - ABDOMINAL PAIN UPPER [None]
  - FATIGUE [None]
  - NERVOUSNESS [None]
  - PANIC ATTACK [None]
  - WEIGHT DECREASED [None]
